FAERS Safety Report 6930713-9 (Version None)
Quarter: 2010Q3

REPORT INFORMATION
  Report Type: 
  Country: None (occurrence: None)
  Receive Date: 20100810
  Receipt Date: 20091207
  Transmission Date: 20110219
  Serious: Yes (Other)
  Sender: FDA-Public Use
  Company Number: 2009260370

PATIENT
  Age: 56 Year
  Sex: Female
  Weight: 47.6 kg

DRUGS (3)
  1. FLAGYL [Suspect]
     Indication: GASTROINTESTINAL DISORDER
     Dosage: 500 MG, 2X/DAY, ORAL
     Route: 048
     Dates: start: 20090422, end: 20090428
  2. FLAGYL [Suspect]
     Indication: VAGINAL DISORDER
     Dosage: 500 MG, 2X/DAY, ORAL
     Route: 048
     Dates: start: 20090422, end: 20090428
  3. NYSTATIN [Concomitant]

REACTIONS (8)
  - GARDNERELLA INFECTION [None]
  - HEADACHE [None]
  - HYPERSENSITIVITY [None]
  - JOINT SWELLING [None]
  - NECK PAIN [None]
  - PRURITUS [None]
  - PYREXIA [None]
  - RASH MACULAR [None]
